FAERS Safety Report 6974931-2 (Version None)
Quarter: 2010Q3

REPORT INFORMATION
  Report Type: 
  Country: None (occurrence: None)
  Receive Date: 20100909
  Receipt Date: 20090108
  Transmission Date: 20110219
  Serious: No
  Sender: FDA-Public Use
  Company Number: US-WYE-H07642509

PATIENT
  Sex: Female

DRUGS (4)
  1. PRISTIQ [Suspect]
     Indication: DEPRESSION
     Route: 048
     Dates: start: 20090101
  2. ATIVAN [Concomitant]
  3. TRAZODONE HCL [Concomitant]
  4. ZOLOFT [Suspect]
     Indication: DEPRESSION
     Dates: end: 20090101

REACTIONS (1)
  - FEELING JITTERY [None]
